FAERS Safety Report 16235304 (Version 2)
Quarter: 2019Q2

REPORT INFORMATION
  Report Type: Spontaneous
  Country: IT (occurrence: IT)
  Receive Date: 20190424
  Receipt Date: 20190506
  Transmission Date: 20190711
  Serious: Yes (Hospitalization)
  Sender: FDA-Public Use
  Company Number: IT-OTSUKA-2019_014228

PATIENT
  Age: 57 Year
  Sex: Female

DRUGS (3)
  1. TRANQUIRIT [Suspect]
     Active Substance: DIAZEPAM
     Indication: DRUG ABUSE
     Dosage: 1 BOTTLE
     Route: 048
     Dates: start: 20190406, end: 20190406
  2. ARIPIPRAZOLE. [Suspect]
     Active Substance: ARIPIPRAZOLE
     Indication: DRUG ABUSE
     Dosage: 28 DF, UNK
     Route: 048
     Dates: start: 20190406, end: 20190406
  3. VENLAFAXINE HYDROCHLORIDE. [Suspect]
     Active Substance: VENLAFAXINE HYDROCHLORIDE
     Indication: DRUG ABUSE
     Dosage: 12 DF, UNK
     Route: 048
     Dates: start: 20190406, end: 20190406

REACTIONS (3)
  - Drug abuse [Unknown]
  - Product use in unapproved indication [Unknown]
  - Apraxia [Unknown]

NARRATIVE: CASE EVENT DATE: 20190406
